FAERS Safety Report 5010858-3 (Version None)
Quarter: 2006Q2

REPORT INFORMATION
  Report Type: 
  Country: None (occurrence: None)
  Receive Date: 20060525
  Receipt Date: 20060517
  Transmission Date: 20061013
  Serious: Yes (Hospitalization)
  Sender: FDA-Public Use
  Company Number: FR-GLAXOSMITHKLINE-B0424184A

PATIENT
  Age: 53 Year
  Sex: Male

DRUGS (6)
  1. DEROXAT [Suspect]
     Indication: DEPRESSION
     Dosage: 60MG PER DAY
     Route: 048
  2. PREVISCAN [Suspect]
     Dosage: .75UNIT PER DAY
     Route: 048
     Dates: start: 20060115
  3. TRANXENE [Concomitant]
     Dosage: 60MG PER DAY
     Route: 048
  4. NOCTAMIDE [Concomitant]
     Dosage: 2MG PER DAY
     Route: 048
  5. ZYPREXA [Concomitant]
     Dosage: 10MG PER DAY
     Route: 048
  6. TAHOR [Concomitant]
     Dosage: 10MG PER DAY
     Route: 048

REACTIONS (4)
  - DRUG INTERACTION [None]
  - INTERNATIONAL NORMALISED RATIO INCREASED [None]
  - PROTHROMBIN LEVEL DECREASED [None]
  - PULMONARY EMBOLISM [None]
